FAERS Safety Report 6316271-0 (Version None)
Quarter: 2009Q3

REPORT INFORMATION
  Report Type: 
  Country: None (occurrence: None)
  Receive Date: 20090820
  Receipt Date: 20090813
  Transmission Date: 20100115
  Serious: Yes (Congenital Anomaly, Other)
  Sender: FDA-Public Use
  Company Number: US-AVENTIS-200917264US

PATIENT
  Sex: Female

DRUGS (4)
  1. LOVENOX [Suspect]
     Indication: PULMONARY EMBOLISM
     Dosage: DOSE: UNK
     Dates: start: 20081201, end: 20090701
  2. REBIF [Suspect]
     Indication: MULTIPLE SCLEROSIS
     Route: 058
     Dates: start: 20080826, end: 20081201
  3. FLEXERIL [Suspect]
     Indication: MUSCLE SPASMS
     Dosage: DOSE: UNK
  4. BIRTH CONTROL PILLS [Suspect]
     Dosage: DOSE: UNK
     Dates: start: 20080601, end: 20081201

REACTIONS (3)
  - ABORTION INDUCED [None]
  - DRUG EXPOSURE DURING PREGNANCY [None]
  - SPINA BIFIDA [None]
